FAERS Safety Report 7412470-5 (Version None)
Quarter: 2011Q2

REPORT INFORMATION
  Report Type: 
  Country: None (occurrence: None)
  Receive Date: 20110413
  Receipt Date: 20110401
  Transmission Date: 20111010
  Serious: Yes (Disabling, Other)
  Sender: FDA-Public Use
  Company Number: PHHY2011US21994

PATIENT
  Sex: Female
  Weight: 145 kg

DRUGS (6)
  1. EXFORGE [Suspect]
     Indication: HYPERTENSION
     Dosage: 1 DF, 160/5 MG PER DAY
     Route: 048
     Dates: start: 20080428
  2. ZOSTAVAX [Concomitant]
     Dosage: ONCE
     Dates: start: 20101014
  3. ALEVE [Concomitant]
     Indication: BACK PAIN
     Dosage: 1 DF, BID, 220 MG
     Route: 048
     Dates: start: 20081122
  4. HYDROCHLOROTHIAZIDE [Concomitant]
     Dosage: 1 DF,12.5 MG EVERY ANOTHER DAY
     Route: 048
     Dates: start: 20081205
  5. SIMVASTATIN [Concomitant]
     Dosage: 1 DF, 40 MG
     Route: 048
     Dates: start: 20100514
  6. MULTIPLE VITAMINS [Concomitant]
     Dosage: 1 DF, UNK

REACTIONS (19)
  - POLYCYTHAEMIA [None]
  - BLOOD ALKALINE PHOSPHATASE INCREASED [None]
  - INTERVERTEBRAL DISC DEGENERATION [None]
  - OSTEOARTHRITIS [None]
  - MULTIPLE FRACTURES [None]
  - BONE PAIN [None]
  - ARTHRALGIA [None]
  - LUMBAR VERTEBRAL FRACTURE [None]
  - AORTIC VALVE INCOMPETENCE [None]
  - HYPONATRAEMIA [None]
  - GENERAL PHYSICAL HEALTH DETERIORATION [None]
  - AORTIC ARTERIOSCLEROSIS [None]
  - CAROTID ARTERY STENOSIS [None]
  - DISABILITY [None]
  - BLOOD PRESSURE INCREASED [None]
  - AORTIC ANEURYSM [None]
  - OSTEOPOROSIS [None]
  - HYPERGLYCAEMIA [None]
  - BACK PAIN [None]
